FAERS Safety Report 19711386 (Version 1)
Quarter: 2021Q3

REPORT INFORMATION
  Report Type: Spontaneous
  Country: GB (occurrence: GB)
  Receive Date: 20210817
  Receipt Date: 20210817
  Transmission Date: 20211014
  Serious: Yes (Other)
  Sender: FDA-Public Use
  Company Number: GB-PERRIGO-21GB011038

PATIENT

DRUGS (4)
  1. HEDEX EXTRA SOLPADEINE HEADACHE TABLETS [Suspect]
     Active Substance: ACETAMINOPHEN\CODEINE PHOSPHATE
     Indication: MIGRAINE
     Dosage: UNK
     Route: 065
  2. HEDEX TABLETS (PARACETAMOL) [Suspect]
     Active Substance: ACETAMINOPHEN
     Indication: MIGRAINE
     Dosage: UNK
     Route: 065
  3. HEDEX EXTRA [Suspect]
     Active Substance: ACETAMINOPHEN\CAFFEINE
     Indication: MIGRAINE
     Dosage: UNK
     Route: 065
  4. HEDEX IBUPROFEN TABLETS [Suspect]
     Active Substance: IBUPROFEN
     Indication: MIGRAINE
     Dosage: UNK
     Route: 065

REACTIONS (1)
  - Gastric ulcer [Unknown]
